FAERS Safety Report 18435089 (Version 2)
Quarter: 2020Q4

REPORT INFORMATION
  Report Type: Other
  Country: HU (occurrence: HU)
  Receive Date: 20201027
  Receipt Date: 20201102
  Transmission Date: 20210114
  Serious: Yes (Other)
  Sender: FDA-Public Use
  Company Number: HU-ROCHE-2700464

PATIENT

DRUGS (2)
  1. OCRELIZUMAB. [Suspect]
     Active Substance: OCRELIZUMAB
     Indication: PRIMARY PROGRESSIVE MULTIPLE SCLEROSIS
     Route: 042
  2. OCRELIZUMAB. [Suspect]
     Active Substance: OCRELIZUMAB
     Indication: RELAPSING-REMITTING MULTIPLE SCLEROSIS

REACTIONS (7)
  - Respiratory tract infection [Unknown]
  - Urinary tract infection [Unknown]
  - Hepatotoxicity [Unknown]
  - Headache [Unknown]
  - Oral herpes [Unknown]
  - Erythema [Unknown]
  - Tachycardia [Unknown]
